FAERS Safety Report 23335597 (Version 2)
Quarter: 2024Q1

REPORT INFORMATION
  Report Type: Report from Study
  Country: CN (occurrence: CN)
  Receive Date: 20231225
  Receipt Date: 20240103
  Transmission Date: 20240409
  Serious: Yes (Other)
  Sender: FDA-Public Use
  Company Number: CN-TAKEDA-2023TUS115874

PATIENT
  Age: 62 Year
  Sex: Male
  Weight: 66 kg

DRUGS (7)
  1. VEDOLIZUMAB [Suspect]
     Active Substance: VEDOLIZUMAB
     Indication: Colitis ulcerative
     Dosage: 300 MILLIGRAM
     Route: 042
     Dates: start: 20221104
  2. PINAVERIUM BROMIDE [Concomitant]
     Active Substance: PINAVERIUM BROMIDE
     Indication: Muscle spasms
     Dosage: 50 MILLIGRAM, TID
     Route: 048
     Dates: start: 20230509, end: 202306
  3. PINAVERIUM BROMIDE [Concomitant]
     Active Substance: PINAVERIUM BROMIDE
     Indication: Analgesic therapy
  4. Live combined bifidobacterium, lactobacillus and enterococcus [Concomitant]
     Indication: Dysbiosis
     Dosage: 420 MILLIGRAM, TID
     Route: 048
     Dates: start: 20230509, end: 202306
  5. THALIDOMIDE [Concomitant]
     Active Substance: THALIDOMIDE
     Indication: Prophylaxis
     Dosage: UNK UNK, QD
     Route: 048
     Dates: start: 20230719, end: 202308
  6. TEPRENONE [Concomitant]
     Active Substance: TEPRENONE
     Indication: Chronic gastritis
     Dosage: 50 MILLIGRAM, TID
     Route: 048
     Dates: start: 20230921
  7. MOSAPRIDE CITRATE [Concomitant]
     Active Substance: MOSAPRIDE CITRATE
     Indication: Duodenogastric reflux
     Dosage: 5 MILLIGRAM, TID
     Route: 048
     Dates: start: 20230921

REACTIONS (6)
  - Hyperbilirubinaemia [Recovered/Resolved]
  - Myalgia [Not Recovered/Not Resolved]
  - Red blood cells urine positive [Not Recovered/Not Resolved]
  - Urinary tract infection [Not Recovered/Not Resolved]
  - Dizziness [Not Recovered/Not Resolved]
  - Vomiting [Recovered/Resolved]

NARRATIVE: CASE EVENT DATE: 20230301
